FAERS Safety Report 18573548 (Version 1)
Quarter: 2020Q4

REPORT INFORMATION
  Report Type: Spontaneous
  Country: FR (occurrence: FR)
  Receive Date: 20201203
  Receipt Date: 20201203
  Transmission Date: 20210114
  Serious: Yes (Life-Threatening, Other)
  Sender: FDA-Public Use
  Company Number: FR-AUROBINDO-AUR-APL-2020-059226

PATIENT
  Age: 19 Year
  Sex: Male
  Weight: 82.5 kg

DRUGS (3)
  1. CLOZAPINE. [Suspect]
     Active Substance: CLOZAPINE
     Indication: PRODUCT USED FOR UNKNOWN INDICATION
     Dosage: 14 DOSAGE FORM (PRESCRIPTION HABITUELLE 1 CP/J)
     Route: 048
     Dates: start: 20200915
  2. PROPRANOLOL [Suspect]
     Active Substance: PROPRANOLOL HYDROCHLORIDE
     Indication: PRODUCT USED FOR UNKNOWN INDICATION
     Dosage: 100 DOSAGE FORM (PRESCRIPTION HABITUELLE 1 CP/J)
     Route: 048
     Dates: start: 20200915
  3. DIAZEPAM. [Suspect]
     Active Substance: DIAZEPAM
     Indication: PRODUCT USED FOR UNKNOWN INDICATION
     Dosage: 64 DOSAGE FORM (PRESCRIPTION HABITUELLE 1 CP/J)
     Route: 048
     Dates: start: 20200915

REACTIONS (2)
  - Intentional overdose [Recovered/Resolved]
  - Cardiogenic shock [Recovered/Resolved with Sequelae]

NARRATIVE: CASE EVENT DATE: 20200915
